FAERS Safety Report 13378276 (Version 3)
Quarter: 2018Q1

REPORT INFORMATION
  Report Type: Report from Study
  Country: US (occurrence: US)
  Receive Date: 20170328
  Receipt Date: 20180111
  Transmission Date: 20180508
  Serious: No
  Sender: FDA-Public Use
  Company Number: US-AMGEN-USASL2017044488

PATIENT
  Age: 74 Year
  Sex: Female
  Weight: 77.11 kg

DRUGS (2)
  1. ENBREL [Suspect]
     Active Substance: ETANERCEPT
     Indication: RHEUMATOID ARTHRITIS
     Dosage: 50 MG, QWK
     Route: 065
     Dates: start: 201703, end: 20171017
  2. HUMULIN NOS [Concomitant]
     Active Substance: INSULIN HUMAN
     Indication: DIABETES MELLITUS
     Dosage: 25 UNIT, BID
     Route: 065
     Dates: start: 201704

REACTIONS (6)
  - Sleep disorder [Not Recovered/Not Resolved]
  - Rheumatoid nodule [Recovering/Resolving]
  - Acne [Recovering/Resolving]
  - Nasopharyngitis [Recovering/Resolving]
  - Musculoskeletal stiffness [Recovering/Resolving]
  - Muscular weakness [Unknown]

NARRATIVE: CASE EVENT DATE: 2017
